FAERS Safety Report 18467648 (Version 2)
Quarter: 2020Q4

REPORT INFORMATION
  Report Type: Report from Study
  Country: US (occurrence: US)
  Receive Date: 20201105
  Receipt Date: 20201116
  Transmission Date: 20210114
  Serious: Yes (Other)
  Sender: FDA-Public Use
  Company Number: US-AMGEN-USASL2020079804

PATIENT
  Sex: Female

DRUGS (1)
  1. ENBREL [Suspect]
     Active Substance: ETANERCEPT
     Indication: PRODUCT USED FOR UNKNOWN INDICATION
     Dosage: 25 MILLIGRAM, 2 TIMES/WK
     Route: 065

REACTIONS (7)
  - Cognitive disorder [Unknown]
  - Optic nerve injury [Unknown]
  - Squamous cell carcinoma [Unknown]
  - Retinal vascular occlusion [Unknown]
  - Psoriasis [Not Recovered/Not Resolved]
  - Subarachnoid haemorrhage [Unknown]
  - Craniocerebral injury [Unknown]
